FAERS Safety Report 6672700-4 (Version None)
Quarter: 2010Q2

REPORT INFORMATION
  Report Type: 
  Country: None (occurrence: None)
  Receive Date: 20100408
  Receipt Date: 20100405
  Transmission Date: 20101027
  Serious: Yes (Death, Other)
  Sender: FDA-Public Use
  Company Number: IT-ROCHE-695271

PATIENT

DRUGS (2)
  1. CAPECITABINE [Suspect]
     Dosage: DAYS 1 TO 14, EVERY 21 DAYS
     Route: 048
  2. LAPATINIB [Suspect]
     Route: 065

REACTIONS (4)
  - CARDIAC FAILURE [None]
  - DEATH [None]
  - HEPATOMEGALY [None]
  - PLEURAL EFFUSION [None]
